FAERS Safety Report 4417708-4 (Version None)
Quarter: 2004Q3

REPORT INFORMATION
  Report Type: 
  Country: None (occurrence: None)
  Receive Date: 20040803
  Receipt Date: 20040719
  Transmission Date: 20050211
  Serious: Yes (Other)
  Sender: FDA-Public Use
  Company Number: 002077

PATIENT
  Age: 53 Year
  Sex: Female
  Weight: 63.5 kg

DRUGS (1)
  1. DIAMOX [Suspect]
     Indication: MOUNTAIN SICKNESS ACUTE
     Dosage: 1.00 TABLET, SINGLE, ORAL
     Route: 048
     Dates: start: 20040607, end: 20040607

REACTIONS (3)
  - BLOOD PRESSURE FLUCTUATION [None]
  - HYPERSENSITIVITY [None]
  - ORTHOSTATIC HYPOTENSION [None]
